FAERS Safety Report 8969963 (Version 5)
Quarter: 2013Q1

REPORT INFORMATION
  Report Type: Spontaneous
  Country: SE (occurrence: SE)
  Receive Date: 20121217
  Receipt Date: 20130313
  Transmission Date: 20140127
  Serious: Yes (Life-Threatening, Hospitalization)
  Sender: FDA-Public Use
  Company Number: SE-ROCHE-1165751

PATIENT
  Sex: Female

DRUGS (8)
  1. MABTHERA [Suspect]
     Indication: LYMPHATIC SYSTEM NEOPLASM
     Route: 042
     Dates: start: 201202, end: 201209
  2. MABTHERA [Suspect]
     Route: 042
     Dates: start: 20121107, end: 20121107
  3. RIBOVACT [Suspect]
     Indication: LYMPHATIC SYSTEM NEOPLASM
     Dosage: CONCENTRATE FOR SOLUTION FOR INFUSION 2.5 MG/ML
     Route: 042
     Dates: start: 201209
  4. AZARGA [Concomitant]
     Dosage: SUSPENSION 10 MG/ML+5 MG/ML
     Route: 065
  5. SOBRIL [Concomitant]
     Route: 065
  6. IMOVANE [Concomitant]
     Route: 065
  7. FLUNITRAZEPAM [Concomitant]
  8. TIMOLOL [Concomitant]
     Route: 065

REACTIONS (3)
  - Respiratory failure [Unknown]
  - Leukocytosis [Recovered/Resolved]
  - Dyspnoea [Not Recovered/Not Resolved]
